FAERS Safety Report 8260382-X (Version None)
Quarter: 2012Q2

REPORT INFORMATION
  Report Type: 
  Country: None (occurrence: None)
  Receive Date: 20120404
  Receipt Date: 20120329
  Transmission Date: 20120825
  Serious: Yes (Other)
  Sender: FDA-Public Use
  Company Number: US-ABBOTT-12P-163-0918304-00

PATIENT
  Sex: Male
  Weight: 104.42 kg

DRUGS (2)
  1. HUMIRA [Suspect]
     Indication: PSORIASIS
     Route: 058
     Dates: start: 20120316
  2. HUMIRA [Suspect]
     Route: 058
     Dates: start: 20120309, end: 20120309

REACTIONS (7)
  - TOOTHACHE [None]
  - NERVE INJURY [None]
  - PAIN [None]
  - SINUSITIS [None]
  - DENTAL NECROSIS [None]
  - TOOTH ABSCESS [None]
  - DISCOMFORT [None]
